FAERS Safety Report 23466937 (Version 2)
Quarter: 2024Q1

REPORT INFORMATION
  Report Type: Spontaneous
  Country: US (occurrence: US)
  Receive Date: 20240201
  Receipt Date: 20240209
  Transmission Date: 20240410
  Serious: Yes (Hospitalization, Other)
  Sender: FDA-Public Use
  Company Number: US-BIOVITRUM-2024-US-001506

PATIENT
  Age: 9 Month
  Sex: Female

DRUGS (3)
  1. SYNAGIS [Suspect]
     Active Substance: PALIVIZUMAB
     Indication: Premature baby
     Dosage: MONTHLY
     Route: 030
  2. MYLICON INFANTS GAS RELIE [Concomitant]
     Indication: Product used for unknown indication
  3. MICONAZOLE NITRATE [Concomitant]
     Active Substance: MICONAZOLE NITRATE
     Indication: Product used for unknown indication

REACTIONS (8)
  - Respiratory syncytial virus infection [Unknown]
  - Loss of consciousness [Unknown]
  - Skin discolouration [Unknown]
  - Immobile [Unknown]
  - Adenovirus infection [Unknown]
  - Product dose omission issue [Unknown]
  - Product administered to patient of inappropriate age [Unknown]
  - Insurance issue [Unknown]
